FAERS Safety Report 24810063 (Version 1)
Quarter: 2025Q1

REPORT INFORMATION
  Report Type: Spontaneous
  Country: US (occurrence: US)
  Receive Date: 20250106
  Receipt Date: 20250106
  Transmission Date: 20250409
  Serious: No
  Sender: BAYER HEALTHCARE LLC
  Company Number: US-BAYER-2025A001376

PATIENT
  Age: 83 Year
  Sex: Male

DRUGS (5)
  1. MIRALAX [Suspect]
     Active Substance: POLYETHYLENE GLYCOL 3350
     Indication: Gastrointestinal disorder
     Route: 048
  2. MIRALAX [Suspect]
     Active Substance: POLYETHYLENE GLYCOL 3350
     Indication: Faeces soft
  3. MAGNESIUM [Concomitant]
     Active Substance: MAGNESIUM
     Indication: Faeces soft
  4. BP (BLOOD PRESSURE) [Concomitant]
  5. DIABETES [Concomitant]

REACTIONS (3)
  - Product prescribing issue [Unknown]
  - Pain [Not Recovered/Not Resolved]
  - Drug ineffective [Not Recovered/Not Resolved]
